FAERS Safety Report 11274072 (Version 1)
Quarter: 2015Q3

REPORT INFORMATION
  Report Type: Spontaneous
  Country: CH (occurrence: CH)
  Receive Date: 20150715
  Receipt Date: 20150715
  Transmission Date: 20151125
  Serious: Yes (Other)
  Sender: FDA-Public Use
  Company Number: CH-GLAXOSMITHKLINE-CH2015100826

PATIENT
  Age: 46 Year
  Sex: Female
  Weight: 50 kg

DRUGS (8)
  1. TRITTICO TABLET [Suspect]
     Active Substance: TRAZODONE HYDROCHLORIDE
     Indication: DEPRESSION
     Route: 048
  2. ESOMEPRAZOLE [Concomitant]
     Active Substance: ESOMEPRAZOLE
     Route: 048
  3. WELLBUTRIN XL [Suspect]
     Active Substance: BUPROPION HYDROCHLORIDE
     Indication: DEPRESSION
     Route: 048
     Dates: start: 20150414, end: 20150507
  4. TRITTICO RETARD [Suspect]
     Active Substance: TRAZODONE HYDROCHLORIDE
     Indication: DEPRESSION
     Route: 048
  5. ENBREL [Concomitant]
     Active Substance: ETANERCEPT
     Indication: ARTHRITIS
     Route: 058
  6. SALAZOPYRIN [Concomitant]
     Active Substance: SULFASALAZINE
  7. VALDOXAN [Concomitant]
     Active Substance: AGOMELATINE
     Indication: DEPRESSION
     Route: 048
  8. YASMINELLE [Concomitant]
     Active Substance: DROSPIRENONE
     Route: 048

REACTIONS (8)
  - Dizziness [Recovering/Resolving]
  - Asthenia [Recovering/Resolving]
  - Inner ear disorder [Recovering/Resolving]
  - Nausea [Recovering/Resolving]
  - Vomiting [Recovering/Resolving]
  - Gait disturbance [Recovering/Resolving]
  - Malaise [Recovering/Resolving]
  - Saccadic eye movement [Recovering/Resolving]

NARRATIVE: CASE EVENT DATE: 20150501
